FAERS Safety Report 12985706 (Version 1)
Quarter: 2016Q4

REPORT INFORMATION
  Report Type: Spontaneous
  Country: FR (occurrence: FR)
  Receive Date: 20161130
  Receipt Date: 20161130
  Transmission Date: 20170207
  Serious: Yes (Hospitalization)
  Sender: FDA-Public Use
  Company Number: FR-ASTRAZENECA-2016SF25941

PATIENT
  Age: 29364 Day
  Sex: Male

DRUGS (15)
  1. SULFARLEM [Concomitant]
     Active Substance: ANETHOLTRITHION
     Route: 048
  2. PERINDOPRIL [Concomitant]
     Active Substance: PERINDOPRIL
     Route: 048
  3. SODIUM DANTROLENE [Concomitant]
     Route: 048
  4. ARTANE [Concomitant]
     Active Substance: TRIHEXYPHENIDYL HYDROCHLORIDE
     Dosage: 0.4% 20 DROPS THREE TIMES A DAY
     Route: 048
  5. LANSOPRAZOLE. [Concomitant]
     Active Substance: LANSOPRAZOLE
     Route: 048
  6. ATORVASTATINE [Concomitant]
     Active Substance: ATORVASTATIN
     Route: 048
  7. KARDEGIC [Suspect]
     Active Substance: ASPIRIN LYSINE
     Indication: PROPHYLAXIS
     Dosage: UNKNOWN
     Route: 065
  8. DULOXETINE BASE [Concomitant]
     Route: 048
  9. FUROSEMIDE. [Concomitant]
     Active Substance: FUROSEMIDE
     Route: 048
  10. OXAZEPAM. [Concomitant]
     Active Substance: OXAZEPAM
     Route: 048
  11. BRILIQUE [Suspect]
     Active Substance: TICAGRELOR
     Indication: PROPHYLAXIS
     Dosage: UNKNOWN
     Route: 048
  12. BISOCE [Concomitant]
     Active Substance: BISOPROLOL
     Route: 048
  13. PREGABALINE [Concomitant]
     Active Substance: PREGABALIN
     Route: 048
  14. DOMPERIDONE [Concomitant]
     Active Substance: DOMPERIDONE
     Route: 048
  15. PREDNISOLONE. [Concomitant]
     Active Substance: PREDNISOLONE
     Route: 048

REACTIONS (3)
  - Fall [Unknown]
  - Subarachnoid haemorrhage [Recovering/Resolving]
  - Head injury [Unknown]

NARRATIVE: CASE EVENT DATE: 20161030
